FAERS Safety Report 17430656 (Version 1)
Quarter: 2020Q1

REPORT INFORMATION
  Report Type: Spontaneous
  Country: US (occurrence: US)
  Receive Date: 20200218
  Receipt Date: 20200218
  Transmission Date: 20200409
  Serious: No
  Sender: FDA-Public Use
  Company Number: US-PERRIGO-19US006568

PATIENT
  Age: 67 Year
  Sex: Female
  Weight: 61.22 kg

DRUGS (1)
  1. KETOCONAZOLE. [Suspect]
     Active Substance: KETOCONAZOLE
     Indication: PRODUCT USED FOR UNKNOWN INDICATION
     Dosage: SMALL AMOUNT, A COUPLE TIMES WEEKLY
     Route: 061
     Dates: start: 201904, end: 20190522

REACTIONS (7)
  - Application site pain [Recovered/Resolved]
  - Incorrect product administration duration [Recovered/Resolved]
  - Application site coldness [Recovered/Resolved]
  - Pruritus [Not Recovered/Not Resolved]
  - Hair texture abnormal [Not Recovered/Not Resolved]
  - Erythema [Unknown]
  - Hair colour changes [Unknown]

NARRATIVE: CASE EVENT DATE: 201904
